FAERS Safety Report 6613428-6 (Version None)
Quarter: 2010Q1

REPORT INFORMATION
  Report Type: 
  Country: None (occurrence: None)
  Receive Date: 20100224
  Receipt Date: 20090416
  Transmission Date: 20100710
  Serious: Yes (Hospitalization, Disabling)
  Sender: FDA-Public Use
  Company Number: WAES 0602USA05314

PATIENT
  Age: 52 Year
  Sex: Male
  Weight: 124.7392 kg

DRUGS (2)
  1. ZOCOR [Suspect]
     Indication: BLOOD CHOLESTEROL INCREASED
     Dosage: PO
     Route: 048
  2. VIOXX [Concomitant]

REACTIONS (7)
  - CARNITINE PALMITOYLTRANSFERASE DEFICIENCY [None]
  - HEPATITIS [None]
  - HEPATOTOXICITY [None]
  - HYPERSENSITIVITY [None]
  - LIVER FUNCTION TEST ABNORMAL [None]
  - MUSCLE SPASMS [None]
  - MYALGIA [None]
